FAERS Safety Report 23108429 (Version 1)
Quarter: 2023Q4

REPORT INFORMATION
  Report Type: Spontaneous
  Country: PT (occurrence: None)
  Receive Date: 20231026
  Receipt Date: 20231026
  Transmission Date: 20240110
  Serious: Yes (Hospitalization, Other)
  Sender: FDA-Public Use
  Company Number: 2023A236795

PATIENT
  Age: 58 Year
  Sex: Female

DRUGS (24)
  1. DURVALUMAB [Suspect]
     Active Substance: DURVALUMAB
     Dosage: 20 MG/KG, CYCLIC (ONCE EVERY FOUR WEEKS)20.0MG/KG EVERY CYCLE
     Route: 042
     Dates: start: 20161104, end: 20161104
  2. DURVALUMAB [Suspect]
     Active Substance: DURVALUMAB
     Dosage: 20 MG/KG, CYCLIC (ONCE EVERY FOUR WEEKS)20.0MG/KG EVERY CYCLE
     Route: 042
     Dates: start: 20161130, end: 20161130
  3. VENLAFAXINE HCL [Suspect]
     Active Substance: VENLAFAXINE HYDROCHLORIDE
     Indication: Depression
     Dosage: 150 MG, 1X/DAY
     Route: 048
     Dates: start: 20160907
  4. VENLAFAXINE HCL [Suspect]
     Active Substance: VENLAFAXINE HYDROCHLORIDE
     Indication: Depression
     Dosage: 75 MG, UNK
     Route: 048
     Dates: start: 20161128
  5. VENLAFAXINE HCL [Suspect]
     Active Substance: VENLAFAXINE HYDROCHLORIDE
     Indication: Depression
     Dosage: 225 MG, 1X/DAY
     Route: 048
     Dates: start: 20161229
  6. TREMELIMUMAB [Suspect]
     Active Substance: TREMELIMUMAB
     Indication: Non-small cell lung cancer
     Dosage: 1 MG/KG, CYCLIC (ONCE EVERY FOUR WEEKS)1.0MG/KG EVERY CYCLE
     Route: 042
     Dates: start: 20161104, end: 20161104
  7. TREMELIMUMAB [Suspect]
     Active Substance: TREMELIMUMAB
     Indication: Non-small cell lung cancer
     Dosage: 1 MG/KG, CYCLIC (ONCE EVERY FOUR WEEKS)1.0MG/KG EVERY CYCLE
     Route: 042
     Dates: start: 20161130, end: 20161130
  8. MIRTAZAPINE [Concomitant]
     Active Substance: MIRTAZAPINE
     Indication: Depression
     Dosage: 30.00 MG QD
     Route: 048
     Dates: start: 20160907
  9. PANTAPRAZOL [Concomitant]
     Indication: Prophylaxis
     Dosage: 40.00 MG QD
     Route: 048
     Dates: start: 20160928
  10. BISACODYL [Concomitant]
     Active Substance: BISACODYL
     Indication: Constipation
     Dosage: 2.00 CAPSULE QD
     Route: 048
     Dates: start: 20160928
  11. MORPHINE SULFATE [Concomitant]
     Active Substance: MORPHINE SULFATE
     Indication: Pain
     Dosage: 20.00 MG PRN20.0MG INTERMITTENT
     Dates: start: 20161104
  12. MORPHINE SULFATE [Concomitant]
     Active Substance: MORPHINE SULFATE
     Indication: Pain
     Dosage: 20.00 MG PRN20.0MG INTERMITTENT
     Dates: start: 20160928
  13. SODIUM LAURILSULFOACETATO [Concomitant]
     Indication: Constipation
     Dosage: 1.00 ENEMA PRN EVERY CYCLE
     Route: 054
     Dates: start: 20160928
  14. FENTANYL [Concomitant]
     Active Substance: FENTANYL\FENTANYL CITRATE
     Indication: Pain
     Dosage: 50.00 UG EVERY 72H52.0UG EVERY CYCLE
     Route: 003
     Dates: start: 20160928
  15. SENE [Concomitant]
     Indication: Constipation
     Dosage: 2.00 CAPSULE QD
     Route: 048
     Dates: start: 20160928
  16. AMITRIPTYLINE HYDROCHLORIDE [Concomitant]
     Active Substance: AMITRIPTYLINE HYDROCHLORIDE
     Indication: Depression
     Dosage: 25.00 MG BID
     Route: 048
     Dates: start: 20160928
  17. SODIUM CITRATE [Concomitant]
     Active Substance: SODIUM CITRATE
     Indication: Constipation
     Dosage: 1.00 MICROENEMA PRN
     Route: 054
     Dates: start: 20160928
  18. NYSTATIN [Concomitant]
     Active Substance: NYSTATIN
     Indication: Mucosal inflammation
     Dosage: 6.00 ML QID
     Route: 048
     Dates: start: 20161117
  19. LACTULOSE [Concomitant]
     Active Substance: LACTULOSE
     Indication: Constipation
     Dosage: 1.00 SPOON TID
     Route: 048
     Dates: start: 20160928
  20. CLOBAZAM [Concomitant]
     Active Substance: CLOBAZAM
     Indication: Depression
     Dosage: 20.00 MG PRN20.0MG INTERMITTENT
     Route: 048
     Dates: start: 20160907
  21. GABAPENTIN [Concomitant]
     Active Substance: GABAPENTIN
     Indication: Pain
     Dosage: 400.00 MG TID
     Route: 048
     Dates: start: 20160928
  22. METHYLPREDNISOLONE [Concomitant]
     Active Substance: METHYLPREDNISOLONE
     Indication: Pain
     Dosage: 0.50 CAPSULE QD
     Route: 048
     Dates: start: 20161021
  23. SUCRALFACT [Concomitant]
     Indication: Prophylaxis
     Dosage: 1.00 SACHET QID
     Dates: start: 20160928
  24. METHIMAZOLE [Concomitant]
     Active Substance: METHIMAZOLE
     Indication: Thyroid cyst
     Dosage: 5.00 MG QD
     Route: 048
     Dates: start: 20160907

REACTIONS (1)
  - Drug-induced liver injury [Not Recovered/Not Resolved]

NARRATIVE: CASE EVENT DATE: 20161229
